FAERS Safety Report 4503039-0 (Version None)
Quarter: 2004Q4

REPORT INFORMATION
  Report Type: 
  Country: None (occurrence: None)
  Receive Date: 20041116
  Receipt Date: 20041116
  Transmission Date: 20050328
  Serious: No
  Sender: FDA-Public Use
  Company Number: None

PATIENT
  Age: 70 Year
  Sex: Male
  Weight: 143.3367 kg

DRUGS (22)
  1. ENOXAPARIN SODIUM [Suspect]
     Indication: MYOCARDIAL INFARCTION
     Dosage: 100 MG Q12 H
     Dates: start: 20040719
  2. WARFARIN SODIUM [Suspect]
     Indication: ATRIAL FIBRILLATION
     Dosage: VARIABLE/HELD PTA
  3. ASPIRIN [Concomitant]
  4. CARVEDIOLOL [Concomitant]
  5. CEPHALEXIN [Concomitant]
  6. CLOPIDOREL BISULFATE [Concomitant]
  7. LANOXIN [Concomitant]
  8. ENALAPRIL MALEATE [Concomitant]
  9. ENOXAPARIN [Concomitant]
  10. FUROSEMIDE [Concomitant]
  11. POTASSIUM CHLORIDE [Concomitant]
  12. SIMVASTATIN [Concomitant]
  13. ACETAMINOPHEN [Concomitant]
  14. NITROGLYCERIN [Concomitant]
  15. PROCHLORPERAZINE MALEATE [Concomitant]
  16. ALOH/MGOH/SIMTH XTRA STRENGHT [Concomitant]
  17. INSULIN NPH HUMAN(NOVOLOIN N) [Concomitant]
  18. INSULIN REG HUMAN (NOVOLOIN R) [Concomitant]
  19. MICONAZOLE NITRAT 2% POWDER [Concomitant]
  20. MILK OF MAGNESIA TAB [Concomitant]
  21. SODIUM CHLORIDE INJ [Concomitant]
  22. UNNA BOOT BANDAGE [Concomitant]

REACTIONS (1)
  - HAEMATURIA [None]
